FAERS Safety Report 7114356-2 (Version None)
Quarter: 2010Q4

REPORT INFORMATION
  Report Type: 
  Country: None (occurrence: None)
  Receive Date: 20101119
  Receipt Date: 20101108
  Transmission Date: 20110411
  Serious: Yes (Hospitalization, Other)
  Sender: FDA-Public Use
  Company Number: PHHO2010GB16454

PATIENT
  Sex: Male
  Weight: 105.2 kg

DRUGS (10)
  1. ENALAPRIL COMP-ENA+ [Suspect]
     Indication: CARDIAC FAILURE CHRONIC
     Dosage: 10 MG, BID
     Route: 048
     Dates: start: 20100621, end: 20101022
  2. LCZ696 [Suspect]
     Indication: CARDIAC FAILURE CHRONIC
  3. COMPARATOR ENALAPRIL [Suspect]
  4. BUMETANIDE [Concomitant]
  5. ASCORBIC ACID [Concomitant]
  6. GLICLAZIDE [Concomitant]
  7. DIGOXIN [Concomitant]
  8. PARACETAMOL [Concomitant]
  9. WARFARIN [Concomitant]
  10. TRAMADOL HCL [Concomitant]

REACTIONS (6)
  - ASTHENIA [None]
  - BLOOD ALBUMIN DECREASED [None]
  - C-REACTIVE PROTEIN INCREASED [None]
  - CHOLECYSTITIS [None]
  - INTERNATIONAL NORMALISED RATIO INCREASED [None]
  - SKIN LESION [None]
